FAERS Safety Report 8306895-3 (Version None)
Quarter: 2012Q2

REPORT INFORMATION
  Report Type: 
  Country: None (occurrence: None)
  Receive Date: 20120424
  Receipt Date: 20120412
  Transmission Date: 20120825
  Serious: Yes (Other)
  Sender: FDA-Public Use
  Company Number: US-JNJFOC-20120309930

PATIENT
  Sex: Female
  Weight: 72.58 kg

DRUGS (5)
  1. REMICADE [Suspect]
     Indication: CROHN'S DISEASE
     Route: 042
     Dates: start: 20120227, end: 20120301
  2. NEXIUM [Concomitant]
     Indication: GASTROOESOPHAGEAL REFLUX DISEASE
     Route: 048
     Dates: start: 20060101
  3. REMICADE [Suspect]
     Indication: ANKYLOSING SPONDYLITIS
     Route: 042
     Dates: start: 20120227, end: 20120301
  4. HYDROCHLOROTHIAZIDE [Concomitant]
     Indication: PRODUCT USED FOR UNKNOWN INDICATION
     Route: 048
     Dates: start: 20100101
  5. BENADRYL [Concomitant]
     Indication: PREMEDICATION
     Route: 065

REACTIONS (7)
  - FEELING ABNORMAL [None]
  - RASH ERYTHEMATOUS [None]
  - PARAESTHESIA [None]
  - GAIT DISTURBANCE [None]
  - SYNCOPE [None]
  - TREMOR [None]
  - PALPITATIONS [None]
